FAERS Safety Report 21026906 (Version 2)
Quarter: 2022Q3

REPORT INFORMATION
  Report Type: Spontaneous
  Country: BR (occurrence: None)
  Receive Date: 20220630
  Receipt Date: 20220709
  Transmission Date: 20221027
  Serious: Yes (Hospitalization)
  Sender: FDA-Public Use
  Company Number: BR-ROCHE-3123577

PATIENT
  Sex: Female
  Weight: 69 kg

DRUGS (4)
  1. ALECENSA [Suspect]
     Active Substance: ALECTINIB HYDROCHLORIDE
     Indication: Lung neoplasm malignant
     Dosage: 6 TABLETS IN THE MORNING AND 6 TABLETS IN THE EVENING
     Route: 065
  2. PULMICORT TURBUHALER [Concomitant]
     Active Substance: BUDESONIDE
  3. SIMETHICONE (DIMETHICONE) [Concomitant]
     Active Substance: DIMETHICONE
  4. CRIZOTINIB [Concomitant]
     Active Substance: CRIZOTINIB
     Indication: Lung neoplasm malignant

REACTIONS (2)
  - Urinary tract infection [Unknown]
  - Respiratory disorder [Unknown]
